FAERS Safety Report 21283987 (Version 18)
Quarter: 2024Q1

REPORT INFORMATION
  Report Type: Spontaneous
  Country: CA (occurrence: CA)
  Receive Date: 20220901
  Receipt Date: 20240321
  Transmission Date: 20240410
  Serious: Yes (Other)
  Sender: FDA-Public Use
  Company Number: CA-CELLTRION INC.-2022CA013068

PATIENT

DRUGS (27)
  1. INFLECTRA [Suspect]
     Active Substance: INFLIXIMAB-DYYB
     Indication: Crohn^s disease
     Dosage: 5 MG/KG, WEEKS 0, 2, 6 THEN EVERY 8 WEEKS
     Route: 042
     Dates: start: 20220712
  2. INFLECTRA [Suspect]
     Active Substance: INFLIXIMAB-DYYB
     Dosage: 5 MG/KG, WEEKS 0, 2, 6 THEN EVERY 8 WEEKS
     Route: 042
     Dates: start: 20220726
  3. INFLECTRA [Suspect]
     Active Substance: INFLIXIMAB-DYYB
     Dosage: 5 MG/KG, WEEKS 0, 2, 6 THEN EVERY 8 WEEKS
     Route: 042
     Dates: start: 20220824
  4. INFLECTRA [Suspect]
     Active Substance: INFLIXIMAB-DYYB
     Dosage: 10 MG/KG, EVERY 8 WEEKS
     Route: 042
     Dates: start: 20221018
  5. INFLECTRA [Suspect]
     Active Substance: INFLIXIMAB-DYYB
     Dosage: 10 MG/KG, EVERY 8 WEEKS
     Route: 042
     Dates: start: 20221215
  6. INFLECTRA [Suspect]
     Active Substance: INFLIXIMAB-DYYB
     Dosage: 790 MG (10MG/KG), MAINTENANCE EVERY 8 WEEKS
     Route: 042
     Dates: start: 20230209
  7. INFLECTRA [Suspect]
     Active Substance: INFLIXIMAB-DYYB
     Dosage: 10 MG/KG, EVERY 8 WEEKS
     Route: 042
     Dates: start: 20230406
  8. INFLECTRA [Suspect]
     Active Substance: INFLIXIMAB-DYYB
     Dosage: 790 MG (10MG/KG), EVERY 8 WEEKS
     Route: 042
     Dates: start: 20230531
  9. INFLECTRA [Suspect]
     Active Substance: INFLIXIMAB-DYYB
     Dosage: 790 MG (10MG/KG), EVERY 8 WEEKS
     Route: 042
     Dates: start: 20230531
  10. INFLECTRA [Suspect]
     Active Substance: INFLIXIMAB-DYYB
     Dosage: 770 MG (10MG/KG), AFTER 8 WEEKS
     Route: 042
     Dates: start: 20230802
  11. INFLECTRA [Suspect]
     Active Substance: INFLIXIMAB-DYYB
     Dosage: 790 MG (10MG/KG), 8 WEEKS
     Route: 042
     Dates: start: 20230927
  12. INFLECTRA [Suspect]
     Active Substance: INFLIXIMAB-DYYB
     Dosage: 830 MG, 8 WEEKS (PRESCRIBED TREATMENTS ARE EVERY 4 WEEKS)
     Route: 042
     Dates: start: 20231122
  13. INFLECTRA [Suspect]
     Active Substance: INFLIXIMAB-DYYB
     Dosage: 830 MG (10 MG/KG), EVERY 4 WEEKS
     Route: 042
     Dates: start: 20231220
  14. INFLECTRA [Suspect]
     Active Substance: INFLIXIMAB-DYYB
     Dosage: 830 MG (10 MG/KG), EVERY 4 WEEKS
     Route: 042
     Dates: start: 20231220
  15. INFLECTRA [Suspect]
     Active Substance: INFLIXIMAB-DYYB
     Dosage: 830 MG (10 MG/KG), EVERY 4 WEEKS
     Route: 042
     Dates: start: 20231220
  16. INFLECTRA [Suspect]
     Active Substance: INFLIXIMAB-DYYB
     Dosage: 830 MG (10 MG/KG), EVERY 4 WEEKS
     Route: 042
     Dates: start: 20231220
  17. INFLECTRA [Suspect]
     Active Substance: INFLIXIMAB-DYYB
     Dosage: 830 MG (10 MG/KG), EVERY 4 WEEKS
     Route: 042
     Dates: start: 20231220
  18. INFLECTRA [Suspect]
     Active Substance: INFLIXIMAB-DYYB
     Dosage: 830 MG (10 MG/KG), EVERY 4 WEEKS
     Route: 042
     Dates: start: 20231220
  19. INFLECTRA [Suspect]
     Active Substance: INFLIXIMAB-DYYB
     Dosage: 850 MG (10MG/KG), EVERY 4 WEEKS
     Route: 042
     Dates: start: 20240117
  20. INFLECTRA [Suspect]
     Active Substance: INFLIXIMAB-DYYB
     Dosage: 830 MG (10 MG/KG), EVERY 4 WEEKS
     Route: 042
     Dates: start: 20240214
  21. INFLECTRA [Suspect]
     Active Substance: INFLIXIMAB-DYYB
     Dosage: 820 MG (10 MG/KG), EVERY 4 WEEKS
     Route: 042
     Dates: start: 20240313
  22. ACETAMINOPHEN [Concomitant]
     Active Substance: ACETAMINOPHEN
     Indication: Premedication
     Dosage: UNK
     Dates: start: 20221018, end: 20221018
  23. CALCIUM [Concomitant]
     Active Substance: CALCIUM
     Dosage: 1 DF DOSAGE INFORMATION NOT AVAILABLE
     Route: 065
  24. DIPHENHYDRAMINE [Concomitant]
     Active Substance: DIPHENHYDRAMINE
     Indication: Premedication
     Dosage: UNK
     Dates: start: 20221018, end: 20221018
  25. OZEMPIC [Concomitant]
     Active Substance: SEMAGLUTIDE
     Dosage: UNK
  26. PREDNISONE [Concomitant]
     Active Substance: PREDNISONE
     Dosage: 50 MG, 1X/DAY
     Route: 065
  27. CHOLECALCIFEROL [Concomitant]
     Active Substance: CHOLECALCIFEROL
     Dosage: 1 DF, DOSAGE INFORMATION NOT AVAILABLE
     Route: 065

REACTIONS (30)
  - Haematemesis [Not Recovered/Not Resolved]
  - Cerebrovascular accident [Recovered/Resolved]
  - Transient ischaemic attack [Recovered/Resolved]
  - Ovarian cancer [Not Recovered/Not Resolved]
  - Breast cancer [Not Recovered/Not Resolved]
  - Abdominal distension [Not Recovered/Not Resolved]
  - Rash [Recovered/Resolved]
  - Rash erythematous [Not Recovered/Not Resolved]
  - Fatigue [Not Recovered/Not Resolved]
  - Pain [Unknown]
  - Constipation [Not Recovered/Not Resolved]
  - Feeding disorder [Not Recovered/Not Resolved]
  - Condition aggravated [Recovering/Resolving]
  - Musculoskeletal stiffness [Recovering/Resolving]
  - Pain in extremity [Recovering/Resolving]
  - Pain in jaw [Recovering/Resolving]
  - Hypoaesthesia [Not Recovered/Not Resolved]
  - Pruritus [Recovered/Resolved]
  - Feeling hot [Recovered/Resolved]
  - Myalgia [Recovered/Resolved]
  - Weight decreased [Not Recovered/Not Resolved]
  - Arthralgia [Recovered/Resolved]
  - Urinary tract infection [Recovered/Resolved]
  - Micturition urgency [Unknown]
  - Flatulence [Not Recovered/Not Resolved]
  - Eructation [Not Recovered/Not Resolved]
  - Nausea [Recovering/Resolving]
  - Vomiting [Not Recovered/Not Resolved]
  - Off label use [Unknown]
  - Inappropriate schedule of product administration [Unknown]

NARRATIVE: CASE EVENT DATE: 20220101
